FAERS Safety Report 9396676 (Version 1)
Quarter: 2013Q3

REPORT INFORMATION
  Report Type: Spontaneous
  Country: CA (occurrence: CA)
  Receive Date: 20130712
  Receipt Date: 20130712
  Transmission Date: 20140515
  Serious: Yes (Other)
  Sender: FDA-Public Use
  Company Number: CA-ROCHE-1247327

PATIENT
  Age: 52 Year
  Sex: Female

DRUGS (12)
  1. XELODA [Suspect]
     Indication: PRODUCT USED FOR UNKNOWN INDICATION
     Dosage: TABLET
     Route: 065
  2. ASPIRIN [Suspect]
     Indication: PRODUCT USED FOR UNKNOWN INDICATION
     Dosage: TABLET
     Route: 065
  3. TYKERB [Suspect]
     Indication: PRODUCT USED FOR UNKNOWN INDICATION
     Route: 048
  4. CLONAZEPAM [Concomitant]
     Route: 065
  5. CRESTOR [Concomitant]
     Route: 065
  6. DIAMICRON [Concomitant]
     Route: 065
  7. JANUVIA [Concomitant]
     Route: 065
  8. PAXIL [Concomitant]
     Route: 065
  9. SYNTHROID [Concomitant]
  10. WELLBUTRIN [Concomitant]
     Dosage: TABLET (EXTENDED-RELEASE)
     Route: 065
  11. ZYLOPRIM [Concomitant]
     Route: 065
  12. PANTOPRAZOLE [Concomitant]

REACTIONS (3)
  - Burns second degree [Recovered/Resolved]
  - Dizziness postural [Recovered/Resolved]
  - Syncope [Recovered/Resolved]
